FAERS Safety Report 8281787-7 (Version None)
Quarter: 2012Q2

REPORT INFORMATION
  Report Type: 
  Country: None (occurrence: None)
  Receive Date: 20120413
  Receipt Date: 20120404
  Transmission Date: 20120825
  Serious: Yes (Hospitalization)
  Sender: FDA-Public Use
  Company Number: PHHY2012MX029868

PATIENT
  Sex: Female

DRUGS (2)
  1. DIOVAN HCT [Suspect]
     Indication: HYPERTENSION
     Dosage: 1 DF (160/12.5 MG ), DAILY
     Dates: start: 20111001
  2. NEO MELUBRINA [Concomitant]
     Indication: INFECTION
     Dosage: 1 DF, DAILY
     Dates: start: 20120301

REACTIONS (1)
  - CATARACT [None]
